FAERS Safety Report 25542490 (Version 2)
Quarter: 2025Q3

REPORT INFORMATION
  Report Type: Spontaneous
  Country: US (occurrence: US)
  Receive Date: 20250711
  Receipt Date: 20250721
  Transmission Date: 20251021
  Serious: No
  Sender: AMGEN
  Company Number: US-AMGEN-USASP2025133899

PATIENT
  Age: 70 Year
  Sex: Female

DRUGS (3)
  1. REPATHA [Suspect]
     Active Substance: EVOLOCUMAB
     Indication: Product used for unknown indication
     Route: 065
  2. COLCHICINE [Concomitant]
     Active Substance: COLCHICINE
  3. PANZYGA [Concomitant]
     Active Substance: HUMAN IMMUNOGLOBULIN G
     Indication: Hypogammaglobulinaemia
     Dosage: 10 MILLILITER, Q3WK
     Route: 040

REACTIONS (3)
  - Blood creatine phosphokinase increased [Unknown]
  - Liver function test abnormal [Unknown]
  - Drug ineffective [Unknown]
